FAERS Safety Report 5719774-2 (Version None)
Quarter: 2008Q2

REPORT INFORMATION
  Report Type: 
  Country: None (occurrence: None)
  Receive Date: 20080428
  Receipt Date: 20070918
  Transmission Date: 20081010
  Serious: No
  Sender: FDA-Public Use
  Company Number: A0682702A

PATIENT
  Age: 43 Year
  Sex: Male

DRUGS (3)
  1. ZOFRAN [Suspect]
     Indication: VERTIGO
     Dosage: 4MG THREE TIMES PER DAY
     Route: 048
  2. MECLIZINE [Concomitant]
  3. VALIUM [Concomitant]

REACTIONS (1)
  - DRUG INEFFECTIVE [None]
